FAERS Safety Report 6390020-2 (Version None)
Quarter: 2009Q4

REPORT INFORMATION
  Report Type: 
  Country: None (occurrence: None)
  Receive Date: 20091006
  Receipt Date: 20090930
  Transmission Date: 20100525
  Serious: Yes (Death)
  Sender: FDA-Public Use
  Company Number: PHHY2009JP39517

PATIENT
  Age: 63 Year
  Sex: Male

DRUGS (8)
  1. CYCLOSPORINE [Suspect]
     Indication: INTERSTITIAL LUNG DISEASE
     Dosage: 100 MG/DAY
  2. CYCLOSPORINE [Suspect]
     Indication: DERMATOMYOSITIS
  3. PREDNISOLONE [Concomitant]
     Indication: INTERSTITIAL LUNG DISEASE
     Dosage: 100 MG/DAY
  4. PREDNISOLONE [Concomitant]
     Indication: DERMATOMYOSITIS
  5. STEROIDS NOS [Concomitant]
     Indication: INTERSTITIAL LUNG DISEASE
     Dosage: PULSE THERAPY
  6. STEROIDS NOS [Concomitant]
     Indication: DERMATOMYOSITIS
  7. ENDOXAN [Concomitant]
     Dosage: INTERMITTENT
  8. POLYGAM S/D [Concomitant]
     Dosage: HIGH DOSE

REACTIONS (4)
  - DISEASE PROGRESSION [None]
  - ENDOTRACHEAL INTUBATION [None]
  - INTERSTITIAL LUNG DISEASE [None]
  - RESPIRATORY DISORDER [None]
